FAERS Safety Report 26119045 (Version 1)
Quarter: 2025Q4

REPORT INFORMATION
  Report Type: Spontaneous
  Country: CO (occurrence: CO)
  Receive Date: 20251204
  Receipt Date: 20251204
  Transmission Date: 20260118
  Serious: Yes (Other)
  Sender: NOVARTIS
  Company Number: CO-002147023-NVSC2025CO184548

PATIENT
  Age: 64 Year
  Sex: Female

DRUGS (2)
  1. LUTETIUM OXODOTREOTIDE LU-177 [Suspect]
     Active Substance: LUTETIUM OXODOTREOTIDE LU-177
     Indication: Aesthesioneuroblastoma
     Dosage: 7.4 GBQ (FOUR CYCLES, EACH ADMINISTERED AT A DOSE OF [200MCI]) EVERY 8 WEEKS TREATMENT)
     Route: 042
     Dates: start: 20230919, end: 20240729
  2. SUNITINIB [Concomitant]
     Active Substance: SUNITINIB
     Indication: Aesthesioneuroblastoma
     Dosage: UNK
     Route: 065
     Dates: start: 20200729, end: 20240729

REACTIONS (8)
  - Leukopenia [Recovered/Resolved]
  - Thrombocytopenia [Recovered/Resolved]
  - Aesthesioneuroblastoma [Recovering/Resolving]
  - Malignant neoplasm progression [Recovering/Resolving]
  - Fatigue [Recovered/Resolved]
  - Nausea [Recovered/Resolved]
  - Anaemia [Recovered/Resolved]
  - Product use in unapproved indication [Unknown]
